FAERS Safety Report 6816204-4 (Version None)
Quarter: 2010Q3

REPORT INFORMATION
  Report Type: 
  Country: None (occurrence: None)
  Receive Date: 20100705
  Receipt Date: 20100629
  Transmission Date: 20110219
  Serious: Yes (Death)
  Sender: FDA-Public Use
  Company Number: PT-BRISTOL-MYERS SQUIBB COMPANY-15160823

PATIENT
  Age: 60 Year
  Sex: Female

DRUGS (3)
  1. SPRYCEL [Suspect]
     Indication: ACUTE LYMPHOCYTIC LEUKAEMIA
     Dosage: 70MG BID
     Route: 048
     Dates: start: 20100206
  2. WARFARIN SODIUM [Suspect]
     Dosage: INITIATED SOME YEARS AGO
     Route: 048
  3. PREDNISOLONE [Concomitant]
     Dosage: STOPPED ONE MONTH LATER
     Route: 048
     Dates: start: 20100206

REACTIONS (3)
  - CEREBRAL HAEMORRHAGE [None]
  - MALIGNANT NEOPLASM PROGRESSION [None]
  - THROMBOCYTOPENIA [None]
